FAERS Safety Report 9895457 (Version 1)
Quarter: 2014Q1

REPORT INFORMATION
  Report Type: Spontaneous
  Country: US (occurrence: US)
  Receive Date: 20140213
  Receipt Date: 20140213
  Transmission Date: 20141002
  Serious: No
  Sender: FDA-Public Use
  Company Number: US-BRISTOL-MYERS SQUIBB COMPANY-18707281

PATIENT
  Age: 72 Year
  Sex: Female

DRUGS (8)
  1. ORENCIA [Suspect]
     Dosage: SQ INJ:6MONTHS?IV FOR ABOUT A YEAR
     Route: 058
  2. ABATACEPT SUBQ INJECTION 125MG/ML [Suspect]
  3. SIMVASTATIN [Concomitant]
  4. METOPROLOL [Concomitant]
  5. PLAVIX [Concomitant]
  6. LOSARTAN [Concomitant]
  7. METHOTREXATE [Concomitant]
  8. NOVOLOG [Concomitant]
     Dosage: NOVOLOG 70/30

REACTIONS (3)
  - Drug ineffective [Unknown]
  - Chills [Unknown]
  - Malaise [Unknown]
